FAERS Safety Report 17175406 (Version 1)
Quarter: 2019Q4

REPORT INFORMATION
  Report Type: Spontaneous
  Country: CA (occurrence: CA)
  Receive Date: 20191219
  Receipt Date: 20191219
  Transmission Date: 20200122
  Serious: Yes (Hospitalization, Other)
  Sender: FDA-Public Use
  Company Number: CA-CELLTRION INC.-2019CA027384

PATIENT

DRUGS (17)
  1. TOVIAZ [Suspect]
     Active Substance: FESOTERODINE FUMARATE
     Dosage: 4 MG, DAILY
     Route: 065
  2. METFORMIN [Suspect]
     Active Substance: METFORMIN HYDROCHLORIDE
     Dosage: 500 MG, DAILY
     Route: 065
  3. PREDNISONE. [Suspect]
     Active Substance: PREDNISONE
     Dosage: 45 MG, DAILY
     Route: 048
  4. SYNTHROID [Suspect]
     Active Substance: LEVOTHYROXINE SODIUM
     Dosage: 0.5 MG, DAILY
     Route: 065
  5. INFLIXIMAB PFIZER (UNKNOWN) [Suspect]
     Active Substance: INFLIXIMAB
     Indication: COLITIS ULCERATIVE
     Dosage: 400 MG, UNK
     Route: 042
  6. INFLIXIMAB PFIZER (UNKNOWN) [Suspect]
     Active Substance: INFLIXIMAB
     Dosage: 400 MG, UNK
     Route: 065
  7. PREDNISONE. [Suspect]
     Active Substance: PREDNISONE
     Dosage: 45 MG, DAILY
     Route: 048
  8. SYNTHROID [Suspect]
     Active Substance: LEVOTHYROXINE SODIUM
     Dosage: 0.5 MG, DAILY
     Route: 065
  9. DULAGLUTIDE. [Concomitant]
     Active Substance: DULAGLUTIDE
     Indication: DIABETES MELLITUS
     Dosage: 7.5 MG, WEEKLY
     Route: 065
  10. PRAMIN [Concomitant]
     Dosage: 0.3 MG, DAILY
     Route: 065
  11. QUINAPRIL. [Suspect]
     Active Substance: QUINAPRIL
     Dosage: 10 MG, DAILY
     Route: 065
  12. QUINAPRIL. [Suspect]
     Active Substance: QUINAPRIL
     Dosage: 10 MG, DAILY
     Route: 065
  13. ASACOL [Suspect]
     Active Substance: MESALAMINE
     Dosage: 1600 MG, 3X/DAY
     Route: 048
  14. FELODIPINE. [Suspect]
     Active Substance: FELODIPINE
     Dosage: 5 MG, DAILY
     Route: 065
  15. ASACOL [Suspect]
     Active Substance: MESALAMINE
     Dosage: 1600 MG, 3X/DAY
     Route: 048
  16. PREMARIN [Suspect]
     Active Substance: ESTROGENS, CONJUGATED
     Dosage: 0.3 MG, DAILY
     Route: 065
  17. FELODIPINE. [Suspect]
     Active Substance: FELODIPINE
     Dosage: 5 MG, DAILY
     Route: 065

REACTIONS (5)
  - Frequent bowel movements [Unknown]
  - Colitis ulcerative [Unknown]
  - Decreased activity [Unknown]
  - Colitis [Unknown]
  - Rectal haemorrhage [Unknown]
